FAERS Safety Report 9921072 (Version 2)
Quarter: 2015Q4

REPORT INFORMATION
  Report Type: Report from Study
  Country: US (occurrence: US)
  Receive Date: 20140225
  Receipt Date: 20151104
  Transmission Date: 20160305
  Serious: Yes (Other)
  Sender: FDA-Public Use
  Company Number: US-ROCHE-1336107

PATIENT
  Sex: Female

DRUGS (10)
  1. AVASTIN [Suspect]
     Active Substance: BEVACIZUMAB
     Indication: RETINAL NEOVASCULARISATION
     Route: 050
  2. MYDRAL [Concomitant]
     Dosage: OU
     Route: 065
  3. HYDROCORTISONE. [Concomitant]
     Active Substance: HYDROCORTISONE
     Dosage: 1/4 INCH STRIP OU
     Route: 047
     Dates: start: 20110824
  4. PROPARACAINE [Concomitant]
     Active Substance: PROPARACAINE
     Dosage: OU
     Route: 065
  5. AZOPT [Concomitant]
     Active Substance: BRINZOLAMIDE
     Dosage: BOTH EYES
     Route: 047
     Dates: start: 20110420
  6. TRAVATAN Z [Concomitant]
     Active Substance: TRAVOPROST
     Dosage: 1 DROP QHS BOTH EYES
     Route: 047
     Dates: start: 20110420
  7. LISINOPRIL. [Concomitant]
     Active Substance: LISINOPRIL
     Route: 065
     Dates: end: 20110824
  8. PRILOSEC [Concomitant]
     Active Substance: OMEPRAZOLE MAGNESIUM
     Dosage: OTC
     Route: 065
     Dates: start: 20110720
  9. LUCENTIS [Suspect]
     Active Substance: RANIBIZUMAB
     Indication: RETINAL NEOVASCULARISATION
     Route: 050
  10. COMBIGAN [Concomitant]
     Active Substance: BRIMONIDINE TARTRATE\TIMOLOL MALEATE
     Dosage: 0.2-0.5%, 1 DROP IN BOTH EYES
     Route: 047
     Dates: start: 20110420

REACTIONS (6)
  - Full blood count decreased [Unknown]
  - Visual impairment [Unknown]
  - Eye pruritus [Recovering/Resolving]
  - Arthralgia [Unknown]
  - Metamorphopsia [Unknown]
  - Off label use [Unknown]
